FAERS Safety Report 5903141-2 (Version None)
Quarter: 2008Q3

REPORT INFORMATION
  Report Type: 
  Country: None (occurrence: None)
  Receive Date: 20080930
  Receipt Date: 20080925
  Transmission Date: 20090109
  Serious: Yes (Hospitalization)
  Sender: FDA-Public Use
  Company Number: US-ELI_LILLY_AND_COMPANY-US200809006131

PATIENT
  Age: 84 Year
  Sex: Male

DRUGS (10)
  1. HUMALOG [Suspect]
     Indication: DIABETES MELLITUS
  2. ISOSORBIDE [Concomitant]
  3. ASPIRIN [Concomitant]
  4. PLAVIX [Concomitant]
  5. FUROSEMIDE [Concomitant]
  6. COREG [Concomitant]
  7. SYNTHROID [Concomitant]
  8. CALCIUM CARBONATE [Concomitant]
  9. FERROUS SULFATE [Concomitant]
  10. NIACIN [Concomitant]

REACTIONS (5)
  - ARTERIAL OCCLUSIVE DISEASE [None]
  - PAIN IN EXTREMITY [None]
  - PERIPHERAL VASCULAR DISORDER [None]
  - SEPSIS [None]
  - SKIN ULCER [None]
